FAERS Safety Report 8792983 (Version 2)
Quarter: 2012Q4

REPORT INFORMATION
  Report Type: 
  Country: US (occurrence: US)
  Receive Date: 20120918
  Receipt Date: 20121221
  Transmission Date: 20130627
  Serious: Yes (Hospitalization, Other)
  Sender: FDA-Public Use
  Company Number: US-VERTEX PHARMACEUTICAL INC.-2012-021271

PATIENT
  Age: 39 Year
  Sex: Female
  Weight: 68 kg

DRUGS (8)
  1. INCIVEK [Suspect]
     Indication: HEPATITIS C
     Dosage: 750 mg, tid
     Route: 048
     Dates: start: 20120811, end: 20120909
  2. INCIVEK [Suspect]
     Dosage: 750 UNK, UNK
     Dates: start: 20121211, end: 20121217
  3. COPEGUS [Suspect]
     Indication: HEPATITIS C
     Dosage: 400 mg, bid
     Route: 048
     Dates: start: 20120811, end: 20120909
  4. COPEGUS [Suspect]
     Dosage: 1000 mg, qd
     Route: 048
     Dates: start: 20121211, end: 20121217
  5. PEGASYS [Suspect]
     Indication: HEPATITIS C
     Dosage: 180 ?g, UNK
     Route: 058
     Dates: start: 20120811, end: 20120909
  6. PEGASYS [Suspect]
     Dosage: 90 ?g, qw
     Route: 058
     Dates: start: 201211, end: 201211
  7. PEGASYS [Suspect]
     Dosage: 135 ?g, UNK
     Route: 058
     Dates: start: 201211, end: 201212
  8. PEGASYS [Suspect]
     Dosage: 180 ?g, qw
     Route: 058
     Dates: start: 201212, end: 20121217

REACTIONS (7)
  - Cerebrovascular accident [Recovered/Resolved]
  - Hepatic encephalopathy [Not Recovered/Not Resolved]
  - Cerebrovascular accident [Not Recovered/Not Resolved]
  - Dysarthria [Not Recovered/Not Resolved]
  - Hypoaesthesia [Not Recovered/Not Resolved]
  - Paraesthesia [Not Recovered/Not Resolved]
  - Confusional state [Recovered/Resolved]
